FAERS Safety Report 7512173-2 (Version None)
Quarter: 2011Q2

REPORT INFORMATION
  Report Type: 
  Country: None (occurrence: None)
  Receive Date: 20110531
  Receipt Date: 20110524
  Transmission Date: 20111010
  Serious: Yes (Other)
  Sender: FDA-Public Use
  Company Number: BR-PFIZER INC-2011111785

PATIENT
  Age: 55 Year
  Sex: Male
  Weight: 77 kg

DRUGS (3)
  1. LONITEN [Suspect]
     Indication: HYPERTENSION
     Dosage: UNK
     Route: 048
     Dates: start: 20060101
  2. METHYLDOPA [Concomitant]
     Dosage: UNK
     Dates: start: 20010101
  3. CAPTOPRIL [Concomitant]
     Dosage: UNK
     Dates: start: 20010101

REACTIONS (1)
  - HAEMODIALYSIS [None]
